FAERS Safety Report 9668709 (Version 1)
Quarter: 2013Q4

REPORT INFORMATION
  Report Type: Spontaneous
  Country: US (occurrence: None)
  Receive Date: 20131104
  Receipt Date: 20131104
  Transmission Date: 20140711
  Serious: Yes (Death)
  Sender: FDA-Public Use
  Company Number: None

PATIENT
  Age: 83 Year
  Sex: Male

DRUGS (1)
  1. NEUPRO PATCH 3MG UCB [Suspect]
     Indication: RESTLESS LEGS SYNDROME
     Dosage: 1 MG, ONCE DAILY, APPLIED TO A SURFACE, USUALLY THE SKIN
     Dates: start: 20130627, end: 20130629

REACTIONS (11)
  - Paraesthesia [None]
  - Dyskinesia [None]
  - Confusional state [None]
  - Dysarthria [None]
  - Myocardial infarction [None]
  - Fall [None]
  - Pneumonia [None]
  - Communication disorder [None]
  - Diet refusal [None]
  - Refusal of treatment by patient [None]
  - Rhinorrhoea [None]
